FAERS Safety Report 9492612 (Version 1)
Quarter: 2013Q3

REPORT INFORMATION
  Report Type: Report from Study
  Country: DE (occurrence: DE)
  Receive Date: 20130830
  Receipt Date: 20130830
  Transmission Date: 20140515
  Serious: Yes (Hospitalization, Other)
  Sender: FDA-Public Use
  Company Number: DE-TEVA-428125GER

PATIENT
  Sex: Male

DRUGS (11)
  1. DOXORUBICIN NOS [Suspect]
     Indication: B-CELL LYMPHOMA
     Dosage: 96 MILLIGRAM DAILY;
     Route: 042
     Dates: start: 20130806, end: 20130806
  2. FILGRASTIM [Suspect]
     Indication: B-CELL LYMPHOMA
     Dosage: 480 MICROGRAM DAILY;
     Route: 058
     Dates: start: 20130712, end: 20130716
  3. PREDNISOLONE [Suspect]
     Indication: B-CELL LYMPHOMA
     Dosage: 100 MILLIGRAM DAILY;
     Route: 048
     Dates: start: 20130806, end: 20130810
  4. VINCRISTINE [Suspect]
     Indication: B-CELL LYMPHOMA
     Dosage: 2 MILLIGRAM DAILY;
     Route: 042
     Dates: start: 20130806, end: 20130806
  5. RITUXIMAB [Suspect]
     Indication: B-CELL LYMPHOMA
     Dosage: 709 MILLIGRAM DAILY;
     Route: 042
     Dates: start: 20130805, end: 20130805
  6. CYCLOPHOSPHAMIDE [Suspect]
     Indication: B-CELL LYMPHOMA
     Dosage: 1433 MICROGRAM DAILY;
     Route: 042
     Dates: start: 20130806, end: 20130806
  7. PANTOPRAZOLE SODIUM [Concomitant]
     Dosage: 80 MILLIGRAM DAILY;
     Route: 048
     Dates: start: 20130524
  8. BISOPROLOL [Concomitant]
     Indication: HYPERTENSION
     Route: 048
     Dates: start: 20130524
  9. HYDROCHLOROTHIAZIDE [Concomitant]
     Dosage: 25 MILLIGRAM DAILY;
     Route: 048
     Dates: start: 20130524
  10. POTASSIUM CITRATE/POTASSIUM HYDROGEN CARBONATE/CITRIC ACID [Concomitant]
  11. SIMVASTATIN [Concomitant]
     Dosage: 40 MILLIGRAM DAILY;
     Route: 048
     Dates: start: 20130524

REACTIONS (6)
  - Infection [Not Recovered/Not Resolved]
  - Pyrexia [Not Recovered/Not Resolved]
  - Neutropenia [Unknown]
  - Thrombocytopenia [Unknown]
  - Anaemia [Unknown]
  - Sepsis [Unknown]
